FAERS Safety Report 9015033 (Version 1)
Quarter: 2013Q1

REPORT INFORMATION
  Report Type: Spontaneous
  Country: US (occurrence: US)
  Receive Date: 20130116
  Receipt Date: 20130116
  Transmission Date: 20140127
  Serious: Yes (Hospitalization)
  Sender: FDA-Public Use
  Company Number: US-009507513-1301USA006064

PATIENT
  Age: 66 Year
  Sex: Male

DRUGS (6)
  1. KIPRES [Suspect]
     Indication: NASOPHARYNGITIS
     Route: 048
  2. AZULENE [Suspect]
  3. ASVERIN (TIPEPIDINE HIBENZATE) [Suspect]
  4. CLARITH [Suspect]
  5. EPINASTINE HYDROCHLORIDE [Suspect]
     Indication: CARDIAC FAILURE CHRONIC
  6. WARFARIN SODIUM [Concomitant]
     Indication: CARDIAC FAILURE

REACTIONS (6)
  - Productive cough [Unknown]
  - Polyuria [Unknown]
  - Pleural effusion [Unknown]
  - Nasopharyngitis [Unknown]
  - Malaise [Unknown]
  - Dyspnoea [Unknown]
